FAERS Safety Report 11277172 (Version 1)
Quarter: 2015Q3

REPORT INFORMATION
  Report Type: Spontaneous
  Country: BR (occurrence: BR)
  Receive Date: 20150716
  Receipt Date: 20150716
  Transmission Date: 20151125
  Serious: Yes (Other)
  Sender: FDA-Public Use
  Company Number: BR-ASTRAZENECA-2015SE68658

PATIENT
  Age: 973 Month
  Sex: Female

DRUGS (8)
  1. CRESTOR [Suspect]
     Active Substance: ROSUVASTATIN CALCIUM
     Indication: BLOOD CHOLESTEROL ABNORMAL
     Dosage: DAILY
     Route: 048
     Dates: start: 2000, end: 201506
  2. VITAMIN D [Concomitant]
     Active Substance: CHOLECALCIFEROL
     Indication: OSTEOPOROSIS
     Dosage: DAILY
     Route: 048
  3. OMEPRAZOLE. [Suspect]
     Active Substance: OMEPRAZOLE
     Indication: METAPLASIA
     Dosage: EVERY MORNING
     Route: 048
  4. OMEPRAZOLE. [Suspect]
     Active Substance: OMEPRAZOLE
     Indication: GASTRITIS
     Dosage: EVERY MORNING
     Route: 048
  5. RITMONORM [Concomitant]
     Active Substance: PROPAFENONE HYDROCHLORIDE
     Indication: ARRHYTHMIA
     Route: 048
  6. AZORGA [Concomitant]
     Active Substance: BRINZOLAMIDE\TIMOLOL MALEATE
     Indication: INTRAOCULAR PRESSURE INCREASED
     Dosage: 1 DROP/EACH EYE/BID
     Route: 047
  7. CRESTOR [Suspect]
     Active Substance: ROSUVASTATIN CALCIUM
     Indication: BLOOD CHOLESTEROL ABNORMAL
     Dosage: BID
     Route: 048
     Dates: start: 201506
  8. CALDEMAG [Concomitant]
     Indication: OSTEOPOROSIS
     Dosage: DAILY
     Route: 048

REACTIONS (3)
  - Blood pressure systolic increased [Not Recovered/Not Resolved]
  - Dizziness [Not Recovered/Not Resolved]
  - Cerebellar infarction [Recovered/Resolved with Sequelae]

NARRATIVE: CASE EVENT DATE: 201407
